FAERS Safety Report 22227677 (Version 1)
Quarter: 2023Q2

REPORT INFORMATION
  Report Type: Spontaneous
  Country: JP (occurrence: None)
  Receive Date: 20230419
  Receipt Date: 20230419
  Transmission Date: 20230721
  Serious: Yes (Life-Threatening, Hospitalization, Other)
  Sender: FDA-Public Use
  Company Number: JP-Merck Healthcare KGaA-9396385

PATIENT
  Age: 60 Year
  Sex: Male

DRUGS (1)
  1. METGLUCO [Suspect]
     Active Substance: METFORMIN HYDROCHLORIDE
     Indication: Type 2 diabetes mellitus
     Route: 048

REACTIONS (6)
  - Renal impairment [Recovering/Resolving]
  - Hyperkalaemia [Unknown]
  - Lactic acidosis [Recovering/Resolving]
  - Hypophagia [Unknown]
  - Dehydration [Unknown]
  - Oropharyngeal pain [Unknown]
